FAERS Safety Report 19668111 (Version 1)
Quarter: 2021Q3

REPORT INFORMATION
  Report Type: Spontaneous
  Country: US (occurrence: US)
  Receive Date: 20210806
  Receipt Date: 20210806
  Transmission Date: 20211014
  Serious: No
  Sender: FDA-Public Use
  Company Number: US-TELIGENT, INC-20210300025

PATIENT
  Age: 59 Year
  Sex: Female

DRUGS (1)
  1. ERYTHROMYCIN UNSPECIFIED [Suspect]
     Active Substance: ERYTHROMYCIN
     Indication: PRODUCT USED FOR UNKNOWN INDICATION
     Dosage: UNKNOWN DOSE

REACTIONS (1)
  - Rash [Unknown]
